FAERS Safety Report 8873134 (Version 1)
Quarter: 2012Q4

REPORT INFORMATION
  Report Type: 
  Country: US (occurrence: US)
  Receive Date: 20121026
  Receipt Date: 20121026
  Transmission Date: 20130627
  Serious: No
  Sender: FDA-Public Use
  Company Number: US-AMGEN-USASP2012050653

PATIENT
  Age: 55 Year
  Sex: Female

DRUGS (10)
  1. ENBREL [Suspect]
     Indication: PRODUCT USED FOR UNKNOWN INDICATION
     Dosage: 50 mg, qwk
     Route: 058
  2. METHOTREXATE [Concomitant]
     Dosage: 50 mg, UNK
  3. FOLIC ACID [Concomitant]
     Dosage: UNK
  4. CELEXA                             /00582602/ [Concomitant]
     Dosage: 40 mg, UNK
  5. SAVELLA [Concomitant]
     Dosage: 100 mg, UNK
  6. AMITRIPTYLIN [Concomitant]
     Dosage: 150 mg, UNK
  7. HYDROCHLOROTH [Concomitant]
     Dosage: 25 mg, UNK
  8. ATENOLOL [Concomitant]
     Dosage: 25 mg, UNK
  9. TRAMADOL HCL [Concomitant]
     Dosage: 50 mg, UNK
  10. MULTIVITAMIN                       /00097801/ [Concomitant]
     Dosage: UNK

REACTIONS (2)
  - Musculoskeletal chest pain [Unknown]
  - Dyspnoea [Unknown]
